FAERS Safety Report 12979227 (Version 3)
Quarter: 2016Q4

REPORT INFORMATION
  Report Type: Spontaneous
  Country: JP (occurrence: JP)
  Receive Date: 20161128
  Receipt Date: 20161207
  Transmission Date: 20170207
  Serious: Yes (Hospitalization)
  Sender: FDA-Public Use
  Company Number: JP-JNJFOC-20161127900

PATIENT
  Age: 38 Year
  Sex: Male

DRUGS (9)
  1. XEPLION [Suspect]
     Active Substance: PALIPERIDONE PALMITATE
     Indication: SUBSTANCE-INDUCED PSYCHOTIC DISORDER
     Route: 030
     Dates: start: 20161111, end: 20161111
  2. XEPLION [Suspect]
     Active Substance: PALIPERIDONE PALMITATE
     Indication: SUBSTANCE-INDUCED PSYCHOTIC DISORDER
     Route: 030
     Dates: start: 20161104, end: 20161104
  3. HIRNAMIN [Suspect]
     Active Substance: PHENOTHIAZINE
     Indication: SUBSTANCE-INDUCED PSYCHOTIC DISORDER
     Route: 048
  4. BELSOMRA [Suspect]
     Active Substance: SUVOREXANT
     Indication: SUBSTANCE-INDUCED PSYCHOTIC DISORDER
     Route: 048
  5. AKINETON [Suspect]
     Active Substance: BIPERIDEN HYDROCHLORIDE
     Indication: SUBSTANCE-INDUCED PSYCHOTIC DISORDER
     Route: 048
  6. XEPLION [Suspect]
     Active Substance: PALIPERIDONE PALMITATE
     Indication: SUBSTANCE-INDUCED PSYCHOTIC DISORDER
     Route: 030
  7. ROHYPNOL [Suspect]
     Active Substance: FLUNITRAZEPAM
     Indication: SUBSTANCE-INDUCED PSYCHOTIC DISORDER
     Route: 048
  8. TETRAMIDE [Suspect]
     Active Substance: MIANSERIN
     Indication: SUBSTANCE-INDUCED PSYCHOTIC DISORDER
     Route: 048
  9. RIVOTRIL [Suspect]
     Active Substance: CLONAZEPAM
     Indication: SUBSTANCE-INDUCED PSYCHOTIC DISORDER
     Route: 048

REACTIONS (4)
  - Drug ineffective [Unknown]
  - Off label use [Unknown]
  - Psychiatric symptom [Recovering/Resolving]
  - Product use issue [Unknown]

NARRATIVE: CASE EVENT DATE: 201611
